FAERS Safety Report 6689975-8 (Version None)
Quarter: 2010Q2

REPORT INFORMATION
  Report Type: 
  Country: None (occurrence: None)
  Receive Date: 20100421
  Receipt Date: 20100125
  Transmission Date: 20101027
  Serious: Yes (Hospitalization)
  Sender: FDA-Public Use
  Company Number: DE-PFIZER INC-2010010297

PATIENT
  Age: 70 Year
  Sex: Male

DRUGS (4)
  1. CABERGOLINE [Suspect]
     Indication: PARKINSON'S DISEASE
     Dosage: 1 MG, 1X/DAY
     Dates: start: 20070404, end: 20070410
  2. CABERGOLINE [Suspect]
     Dosage: 1 MG, 2X/DAY
     Dates: start: 20070411, end: 20070417
  3. CABERGOLINE [Suspect]
     Dosage: 1 MG, 3X/DAY
     Dates: start: 20070418, end: 20070424
  4. CABERGOLINE [Suspect]
     Dosage: 4 MG, 1X/DAY
     Dates: start: 20070425

REACTIONS (1)
  - HIP ARTHROPLASTY [None]
